FAERS Safety Report 6301207-9 (Version None)
Quarter: 2009Q3

REPORT INFORMATION
  Report Type: 
  Country: None (occurrence: None)
  Receive Date: 20090807
  Receipt Date: 20090803
  Transmission Date: 20100115
  Serious: Yes (Life-Threatening, Other)
  Sender: FDA-Public Use
  Company Number: PHEH2009US08721

PATIENT
  Sex: Female

DRUGS (9)
  1. RECLAST [Suspect]
     Dosage: UNK
     Dates: start: 20090731, end: 20090731
  2. GABAPENTIN [Concomitant]
     Dosage: 300 MG, UNK
  3. QUINAPRIL [Concomitant]
     Dosage: UNK, UNK
  4. LOVASTATIN [Concomitant]
     Dosage: UNK, UNK
  5. TRAMADOL HCL [Concomitant]
     Dosage: UNK, UNK
  6. PRILOSEC [Concomitant]
     Indication: HIATUS HERNIA
     Dosage: UNK, UNK
  7. DICYCLOMINE [Concomitant]
     Dosage: 10 MG, UNK
  8. FLUOXETINE [Concomitant]
     Dosage: 30 MG, UNK
  9. XANAX [Concomitant]
     Dosage: 0.5 MG, UNK

REACTIONS (13)
  - BACK DISORDER [None]
  - BODY TEMPERATURE DECREASED [None]
  - CONFUSIONAL STATE [None]
  - DYSPNOEA [None]
  - FEELING COLD [None]
  - MALAISE [None]
  - MUSCLE SPASMS [None]
  - NAUSEA [None]
  - OROPHARYNGEAL PAIN [None]
  - PAIN [None]
  - PRESYNCOPE [None]
  - PYREXIA [None]
  - SLEEP DISORDER [None]
